FAERS Safety Report 6450254-5 (Version None)
Quarter: 2009Q4

REPORT INFORMATION
  Report Type: 
  Country: None (occurrence: None)
  Receive Date: 20091123
  Receipt Date: 20091111
  Transmission Date: 20100525
  Serious: Yes (Hospitalization)
  Sender: FDA-Public Use
  Company Number: DE-AMGEN-US374558

PATIENT
  Age: 70 Year
  Sex: Female

DRUGS (2)
  1. ENBREL [Suspect]
     Indication: RHEUMATOID ARTHRITIS
     Route: 058
     Dates: start: 20090115, end: 20090901
  2. ENBREL [Suspect]
     Indication: POLYARTHRITIS

REACTIONS (4)
  - ABSCESS LIMB [None]
  - ARTHRODESIS [None]
  - IMPAIRED HEALING [None]
  - INTERVERTEBRAL DISC OPERATION [None]
